FAERS Safety Report 10673434 (Version 5)
Quarter: 2016Q2

REPORT INFORMATION
  Report Type: Report from Study
  Country: CA (occurrence: CA)
  Receive Date: 20141224
  Receipt Date: 20160423
  Transmission Date: 20160815
  Serious: Yes (Other)
  Sender: FDA-Public Use
  Company Number: CA-AMGEN-CANSL2014099778

PATIENT
  Age: 57 Year
  Sex: Female

DRUGS (1)
  1. ENBREL [Suspect]
     Active Substance: ETANERCEPT
     Indication: RHEUMATOID ARTHRITIS
     Dosage: 50 MG, UNK
     Route: 065
     Dates: start: 20040205, end: 2010

REACTIONS (9)
  - Eye haemorrhage [Unknown]
  - Hypertension [Unknown]
  - Breast cancer female [Unknown]
  - Lower respiratory tract infection [Unknown]
  - Foot operation [Unknown]
  - Renal failure [Unknown]
  - Headache [Unknown]
  - Localised infection [Unknown]
  - Osteomyelitis [Unknown]

NARRATIVE: CASE EVENT DATE: 2011
